FAERS Safety Report 4340942-9 (Version None)
Quarter: 2004Q2

REPORT INFORMATION
  Report Type: 
  Country: None (occurrence: None)
  Receive Date: 20040413
  Receipt Date: 20040401
  Transmission Date: 20050107
  Serious: Yes (Death)
  Sender: FDA-Public Use
  Company Number: 163-20785-04020146

PATIENT
  Age: 60 Year
  Sex: Female

DRUGS (1)
  1. THALOMID [Suspect]
     Indication: PANCREATIC CARCINOMA
     Dosage: 50 MG, DAILY, ORAL
     Route: 048
     Dates: start: 20031111, end: 20031116

REACTIONS (2)
  - DISEASE PROGRESSION [None]
  - PANCREATIC CARCINOMA METASTATIC [None]
